FAERS Safety Report 5933568-4 (Version None)
Quarter: 2008Q4

REPORT INFORMATION
  Report Type: 
  Country: None (occurrence: None)
  Receive Date: 20081024
  Receipt Date: 20081014
  Transmission Date: 20090506
  Serious: Yes (Other)
  Sender: FDA-Public Use
  Company Number: 2008SP020871

PATIENT
  Age: 51 Year
  Sex: Female

DRUGS (3)
  1. TEMODAL [Suspect]
     Indication: GLIOBLASTOMA
     Dosage: 140 MG;QD;PO
     Route: 048
     Dates: start: 20080918, end: 20081014
  2. COTRIM [Concomitant]
  3. ONDANSETRON [Concomitant]

REACTIONS (1)
  - HEPATIC ENZYME INCREASED [None]
